FAERS Safety Report 8989044 (Version 1)
Quarter: 2012Q4

REPORT INFORMATION
  Report Type: Spontaneous
  Country: US (occurrence: None)
  Receive Date: 20121224
  Receipt Date: 20121224
  Transmission Date: 20130627
  Serious: No
  Sender: FDA-Public Use
  Company Number: None

PATIENT
  Sex: Male
  Weight: 70.31 kg

DRUGS (2)
  1. STRATTERA [Suspect]
     Indication: ADHD
     Dosage: 25mg  1 per 24 hours  po
     Route: 048
     Dates: start: 20121216, end: 20121219
  2. STRATTERA [Suspect]
     Indication: ASPERGER^S DISORDER
     Dosage: 25mg  1 per 24 hours  po
     Route: 048
     Dates: start: 20121216, end: 20121219

REACTIONS (3)
  - Drug withdrawal syndrome [None]
  - Insomnia [None]
  - Abnormal dreams [None]
